FAERS Safety Report 5829711-8 (Version None)
Quarter: 2008Q3

REPORT INFORMATION
  Report Type: 
  Country: None (occurrence: None)
  Receive Date: 20080729
  Receipt Date: 20080720
  Transmission Date: 20090109
  Serious: Yes (Life-Threatening, Hospitalization)
  Sender: FDA-Public Use
  Company Number: 20074055

PATIENT
  Sex: Male

DRUGS (1)
  1. LIORESAL INTRATHECAL(BACLOFEN INJECTION) [Suspect]
     Indication: MUSCLE SPASTICITY
     Dosage: /MCG, DAILY, INTRATHECAL
     Route: 037

REACTIONS (12)
  - CARDIAC FIBRILLATION [None]
  - DEVICE BREAKAGE [None]
  - DEVICE CONNECTION ISSUE [None]
  - DRUG WITHDRAWAL SYNDROME [None]
  - HALLUCINATION [None]
  - HYPERHIDROSIS [None]
  - HYPERTONIA [None]
  - MALAISE [None]
  - MUSCLE SPASTICITY [None]
  - PAIN [None]
  - PYREXIA [None]
  - TACHYCARDIA [None]
